FAERS Safety Report 16658153 (Version 3)
Quarter: 2019Q3

REPORT INFORMATION
  Report Type: Spontaneous
  Country: JP (occurrence: JP)
  Receive Date: 20190801
  Receipt Date: 20190904
  Transmission Date: 20191004
  Serious: Yes (Other)
  Sender: FDA-Public Use
  Company Number: JP-GLAXOSMITHKLINE-JP2019JPN137032

PATIENT
  Age: 63 Year
  Sex: Male
  Weight: 78 kg

DRUGS (2)
  1. RELVAR ELLIPTA [Suspect]
     Active Substance: FLUTICASONE FUROATE\VILANTEROL TRIFENATATE
     Dosage: UNK
     Route: 055
     Dates: start: 2018
  2. ARNUITY ELLIPTA [Suspect]
     Active Substance: FLUTICASONE FUROATE
     Indication: ASTHMA
     Dosage: 100 ?G, QD
     Route: 055
     Dates: start: 20190629, end: 20190726

REACTIONS (6)
  - Headache [Recovered/Resolved]
  - Head discomfort [Unknown]
  - Loss of consciousness [Recovered/Resolved]
  - Muscle disorder [Unknown]
  - Depressed level of consciousness [Recovered/Resolved]
  - Myalgia [Recovered/Resolved]

NARRATIVE: CASE EVENT DATE: 20190723
